FAERS Safety Report 7873443-1 (Version None)
Quarter: 2011Q4

REPORT INFORMATION
  Report Type: 
  Country: None (occurrence: None)
  Receive Date: 20111030
  Receipt Date: 20110504
  Transmission Date: 20120403
  Serious: No
  Sender: FDA-Public Use
  Company Number: US-AMGEN-USASP2011023223

PATIENT
  Sex: Female

DRUGS (3)
  1. ENBREL [Suspect]
     Indication: FIBROMYALGIA
  2. TREXALL [Concomitant]
     Dosage: 1 MG, QWK
     Dates: start: 20040101
  3. ENBREL [Suspect]
     Indication: RHEUMATOID ARTHRITIS
     Dosage: 50 MG, QWK
     Dates: start: 20040712

REACTIONS (1)
  - SEASONAL ALLERGY [None]
